FAERS Safety Report 9958644 (Version 1)
Quarter: 2014Q1

REPORT INFORMATION
  Report Type: Other
  Country: IT (occurrence: IT)
  Receive Date: 20140305
  Receipt Date: 20140305
  Transmission Date: 20141002
  Serious: Yes (Death, Hospitalization)
  Sender: FDA-Public Use
  Company Number: IT-SUN PHARMACEUTICAL INDUSTRIES LTD-2014SUN00521

PATIENT
  Sex: 0

DRUGS (2)
  1. OXALIPLATINO SUN 5 MG/ML, CONCENTRATO PER SOLUZIONE PER INFUSIONE [Suspect]
     Indication: ADENOCARCINOMA OF COLON
     Dosage: 213 MG, TOTAL 1
     Route: 042
     Dates: start: 20131205, end: 20131205
  2. XELODA-500 MG 120 COMPRESSE FILMRIVESTITE IN BLISTER USO [Suspect]
     Indication: ADENOCARCINOMA OF COLON
     Dosage: 3500 MG, QD
     Route: 048
     Dates: start: 20131206, end: 20131218

REACTIONS (5)
  - Diarrhoea [Fatal]
  - Erythema [Fatal]
  - Febrile neutropenia [Fatal]
  - Multi-organ failure [None]
  - White blood cell count decreased [None]
